FAERS Safety Report 8197015-7 (Version None)
Quarter: 2012Q1

REPORT INFORMATION
  Report Type: 
  Country: None (occurrence: None)
  Receive Date: 20120309
  Receipt Date: 20120228
  Transmission Date: 20120608
  Serious: Yes (Hospitalization, Other)
  Sender: FDA-Public Use
  Company Number: US-ELI_LILLY_AND_COMPANY-US201106005492

PATIENT
  Sex: Female

DRUGS (15)
  1. PROTONIX [Concomitant]
     Dosage: 40 MG, QD
  2. FORTEO [Suspect]
     Dosage: 20 UG, QD
  3. ERGOCALCIFEROL [Concomitant]
  4. ESCITALOPRAM OXALATE [Concomitant]
  5. LASIX [Concomitant]
     Dosage: 40 MG, UNK
  6. DILANTIN [Concomitant]
     Dosage: 100 MG, TID
  7. PREDNISONE [Concomitant]
     Dosage: 5 MG, UNK
  8. GABAPENTIN [Concomitant]
     Dosage: 900 MG, TID
  9. NOVOLOG [Concomitant]
  10. FORTEO [Suspect]
     Indication: OSTEOPOROSIS
     Dosage: 20 UG, QD
     Route: 065
  11. PROGRAF [Concomitant]
     Dosage: 2.5 MG, BID
  12. ASPIRIN [Concomitant]
  13. KEPPRA [Concomitant]
     Dosage: 750 MG, UNK
  14. VITAMIN D [Concomitant]
     Route: 065
  15. HYDROCODONE BITARTRATE [Concomitant]
     Dosage: 325 MG, UNK

REACTIONS (5)
  - GRAND MAL CONVULSION [None]
  - NERVOUS SYSTEM DISORDER [None]
  - SHUNT MALFUNCTION [None]
  - INFECTION [None]
  - DRUG DOSE OMISSION [None]
